FAERS Safety Report 9650685 (Version 1)
Quarter: 2013Q4

REPORT INFORMATION
  Report Type: Report from Study
  Country: AR (occurrence: AR)
  Receive Date: 20131029
  Receipt Date: 20131029
  Transmission Date: 20140711
  Serious: Yes (Other)
  Sender: FDA-Public Use
  Company Number: AR-ROCHE-1293057

PATIENT
  Age: 65 Year
  Sex: Female

DRUGS (2)
  1. RANIBIZUMAB [Suspect]
     Indication: THROMBOSIS
     Dosage: DOSE:1 AMPOULE
     Route: 050
     Dates: start: 20120822
  2. RANIBIZUMAB [Suspect]
     Indication: BLINDNESS UNILATERAL

REACTIONS (4)
  - Hypertension [Not Recovered/Not Resolved]
  - Arrhythmia [Not Recovered/Not Resolved]
  - Injection site pain [Recovering/Resolving]
  - Visual impairment [Not Recovered/Not Resolved]
